FAERS Safety Report 7203410-2 (Version None)
Quarter: 2010Q4

REPORT INFORMATION
  Report Type: 
  Country: None (occurrence: None)
  Receive Date: 20101220
  Receipt Date: 20101203
  Transmission Date: 20110411
  Serious: Yes (Other)
  Sender: FDA-Public Use
  Company Number: 023257

PATIENT
  Sex: Female
  Weight: 75 kg

DRUGS (7)
  1. CIMZIA [Suspect]
     Indication: RHEUMATOID ARTHRITIS
     Dosage: (400 MG 1X/2 WEEKS, TWO SHOTS SUBCUTANEOUS) ; (400 MG 1X/2 WEEKS, TWO SHOTS SUBCUTANEOUS)
     Route: 058
     Dates: start: 20100601
  2. CIMZIA [Suspect]
     Indication: RHEUMATOID ARTHRITIS
     Dosage: (400 MG 1X/2 WEEKS, TWO SHOTS SUBCUTANEOUS) ; (400 MG 1X/2 WEEKS, TWO SHOTS SUBCUTANEOUS)
     Route: 058
     Dates: start: 20101202
  3. METHOTREXATE [Concomitant]
  4. FOLIC ACID [Concomitant]
  5. PREDNISONE [Concomitant]
  6. VICODIN [Concomitant]
  7. BLACKMORES VITAMIN C [Concomitant]

REACTIONS (1)
  - SINUSITIS [None]
